FAERS Safety Report 10797819 (Version 1)
Quarter: 2015Q1

REPORT INFORMATION
  Report Type: Report from Study
  Country: US (occurrence: US)
  Receive Date: 20150216
  Receipt Date: 20150216
  Transmission Date: 20150721
  Serious: No
  Sender: FDA-Public Use
  Company Number: US-ABBVIE-14K-163-1234808-00

PATIENT
  Age: 62 Year
  Sex: Female

DRUGS (8)
  1. HUMIRA [Suspect]
     Active Substance: ADALIMUMAB
     Indication: PSORIASIS
     Dates: start: 20140330, end: 20140330
  2. ESTRADIOL. [Concomitant]
     Active Substance: ESTRADIOL
     Indication: PRODUCT USED FOR UNKNOWN INDICATION
  3. DEXILANT [Concomitant]
     Active Substance: DEXLANSOPRAZOLE
     Indication: PRODUCT USED FOR UNKNOWN INDICATION
  4. ESTRADIOL. [Concomitant]
     Active Substance: ESTRADIOL
  5. ESTRADIOL. [Concomitant]
     Active Substance: ESTRADIOL
     Dosage: IN MORNING AND AT NIGHT
  6. GABAPENTIN. [Concomitant]
     Active Substance: GABAPENTIN
     Indication: PAIN
  7. GABAPENTIN. [Concomitant]
     Active Substance: GABAPENTIN
     Dosage: ADDITIONAL DOSE
  8. HUMIRA [Suspect]
     Active Substance: ADALIMUMAB
     Dates: start: 20140406

REACTIONS (17)
  - Arthralgia [Unknown]
  - Erythema [Not Recovered/Not Resolved]
  - Skin discolouration [Unknown]
  - Skin mass [Not Recovered/Not Resolved]
  - Psoriasis [Not Recovered/Not Resolved]
  - Inappropriate schedule of drug administration [Recovered/Resolved]
  - Psoriasis [Not Recovered/Not Resolved]
  - Pain in extremity [Unknown]
  - Choking sensation [Not Recovered/Not Resolved]
  - Pupillary disorder [Not Recovered/Not Resolved]
  - Skin fissures [Not Recovered/Not Resolved]
  - Hot flush [Recovering/Resolving]
  - Skin ulcer [Not Recovered/Not Resolved]
  - Pruritus [Not Recovered/Not Resolved]
  - Myalgia [Unknown]
  - Eye pain [Not Recovered/Not Resolved]
  - Pain [Not Recovered/Not Resolved]

NARRATIVE: CASE EVENT DATE: 20140330
